FAERS Safety Report 9061192 (Version 1)
Quarter: 2013Q1

REPORT INFORMATION
  Report Type: Spontaneous
  Country: US (occurrence: US)
  Receive Date: 20130213
  Receipt Date: 20130213
  Transmission Date: 20140127
  Serious: No
  Sender: FDA-Public Use
  Company Number: US-BIOGENIDEC-2013BI012336

PATIENT
  Age: 50 Year
  Sex: Female

DRUGS (1)
  1. TYSABRI [Suspect]
     Indication: MULTIPLE SCLEROSIS
     Route: 042
     Dates: start: 20070905

REACTIONS (4)
  - Drug dose omission [Not Recovered/Not Resolved]
  - General physical health deterioration [Recovered/Resolved with Sequelae]
  - Depression [Recovered/Resolved with Sequelae]
  - Nuclear magnetic resonance imaging abnormal [Not Recovered/Not Resolved]
